FAERS Safety Report 12169547 (Version 2)
Quarter: 2016Q1

REPORT INFORMATION
  Report Type: Report from Study
  Country: US (occurrence: US)
  Receive Date: 20160310
  Receipt Date: 20160318
  Transmission Date: 20160526
  Serious: Yes (Hospitalization)
  Sender: FDA-Public Use
  Company Number: US-ACTELION-A-US2016-132500

PATIENT
  Age: 88 Year
  Sex: Female

DRUGS (1)
  1. TRACLEER [Suspect]
     Active Substance: BOSENTAN
     Indication: PULMONARY ARTERIAL HYPERTENSION
     Dosage: 125 MG, BID
     Route: 048
     Dates: start: 20110723

REACTIONS (6)
  - Angioplasty [Unknown]
  - Hypotension [Unknown]
  - Fluid retention [Unknown]
  - Renal failure [Unknown]
  - Dyspnoea [Unknown]
  - Post procedural complication [Unknown]

NARRATIVE: CASE EVENT DATE: 20160123
